FAERS Safety Report 22104277 (Version 2)
Quarter: 2023Q1

REPORT INFORMATION
  Report Type: Spontaneous
  Country: US (occurrence: US)
  Receive Date: 20230316
  Receipt Date: 20230320
  Transmission Date: 20230417
  Serious: Yes (Hospitalization, Other)
  Sender: FDA-Public Use
  Company Number: US-MLMSERVICE-20230306-4147130-1

PATIENT
  Age: 77 Year
  Sex: Female

DRUGS (3)
  1. VERAPAMIL HCL [Suspect]
     Active Substance: VERAPAMIL HYDROCHLORIDE
     Dosage: 240 MG, 1X/DAY
  2. LISINOPRIL [Concomitant]
     Active Substance: LISINOPRIL
     Dosage: 20 MG, 1X/DAY
  3. FUROSEMIDE [Concomitant]
     Active Substance: FUROSEMIDE
     Dosage: 20 MG, 1X/DAY

REACTIONS (1)
  - BRASH syndrome [Recovering/Resolving]
